FAERS Safety Report 25529005 (Version 1)
Quarter: 2025Q3

REPORT INFORMATION
  Report Type: Spontaneous
  Country: US (occurrence: None)
  Receive Date: 20250707
  Receipt Date: 20250707
  Transmission Date: 20251021
  Serious: Yes (unspecified)
  Sender: FDA-CTU
  Company Number: None

PATIENT
  Age: 13 Year
  Sex: Female
  Weight: 41 kg

DRUGS (8)
  1. FOSAPREPITANT [Suspect]
     Active Substance: FOSAPREPITANT
     Indication: Prophylaxis of nausea and vomiting
     Route: 042
     Dates: start: 20250704, end: 20250704
  2. FAMOTIDINE [Concomitant]
     Active Substance: FAMOTIDINE
     Dates: start: 20250703
  3. OXYCODONE [Concomitant]
     Active Substance: OXYCODONE
     Dates: start: 20250703
  4. Urosdiol [Concomitant]
     Dates: start: 20250703
  5. Sodium Chloride 0.9% NaCl with potassium chloride, calcium gluconategn [Concomitant]
     Dates: start: 20250704
  6. PIPERACILLIN AND TAZOBACTAM [Concomitant]
     Active Substance: PIPERACILLIN SODIUM\TAZOBACTAM SODIUM
     Dates: start: 20250702, end: 20250706
  7. DEXAMETHASONE [Concomitant]
     Active Substance: DEXAMETHASONE
     Dates: start: 20250704, end: 20250704
  8. PALONOSETRON [Concomitant]
     Active Substance: PALONOSETRON
     Dates: start: 20250704, end: 20250704

REACTIONS (3)
  - Infusion related reaction [None]
  - Bradycardia [None]
  - Paraesthesia [None]

NARRATIVE: CASE EVENT DATE: 20250704
